FAERS Safety Report 8405926-X (Version None)
Quarter: 2012Q2

REPORT INFORMATION
  Report Type: 
  Country: None (occurrence: None)
  Receive Date: 20120529
  Receipt Date: 20011010
  Transmission Date: 20120825
  Serious: Yes (Hospitalization, Other)
  Sender: FDA-Public Use
  Company Number: 02100-JPN-01-0095

PATIENT
  Age: 85 Year
  Sex: Female
  Weight: 50 kg

DRUGS (8)
  1. PLETAL [Suspect]
     Indication: CORONARY ARTERIAL STENT INSERTION
     Dosage: 100 MG, BID, ORAL
     Route: 048
     Dates: start: 20010724, end: 20010910
  2. MUCOSTA (REBAMIPIDE) TABLET, 100 MG 05/17/2001 TO ONGOING [Concomitant]
  3. GLYCYRON (AMINOACETIC ACID, DL-METHIONINE, GLYCYRRHIZIC ACID) TABLET 0 [Concomitant]
  4. FAMOTIDINE [Suspect]
     Indication: GASTRITIS
     Dosage: 20 MG, QD, ORAL
     Route: 048
     Dates: start: 20010517, end: 20010903
  5. CONCENTRATEDHUMANRED BLOOD CELLS (CONCENTRATEDHUMANRED BLOOD CELLS) IN [Concomitant]
  6. BUFFERIN (ACETYLSALICYLIC ACID, MAGNESIUM CARBONATE, ALUMINUM GLYCINAT [Concomitant]
  7. MAGNESIUM OXIDE (MAGNESIUM OXIDE) POWDER (EXCEPT [DPO]) 05/17/2001 TO [Concomitant]
  8. CONCENTRATEDHUMANRED BLOOD CELLS (CONCENTRATEDHUMANRED BLOOD CELLS) IN [Concomitant]

REACTIONS (3)
  - ANAEMIA [None]
  - AGRANULOCYTOSIS [None]
  - SHOCK [None]
